FAERS Safety Report 18820703 (Version 1)
Quarter: 2021Q1

REPORT INFORMATION
  Report Type: Spontaneous
  Country: US (occurrence: US)
  Receive Date: 20210201
  Receipt Date: 20210201
  Transmission Date: 20210419
  Serious: Yes (Disabling)
  Sender: FDA-Public Use
  Company Number: None

PATIENT
  Age: 69 Year
  Sex: Female
  Weight: 67.5 kg

DRUGS (5)
  1. PROLIA [Suspect]
     Active Substance: DENOSUMAB
     Indication: PRODUCT USED FOR UNKNOWN INDICATION
     Dosage: ?          OTHER ROUTE:SHOT?
     Dates: start: 20200626
  2. VITAMIN D [Concomitant]
     Active Substance: VITAMIN D NOS
  3. ASPIRIN. [Concomitant]
     Active Substance: ASPIRIN
  4. THYROID MEDS (2) [Concomitant]
  5. ZINC. [Concomitant]
     Active Substance: ZINC

REACTIONS (4)
  - Pain in extremity [None]
  - Myalgia [None]
  - Pain in jaw [None]
  - Bone pain [None]

NARRATIVE: CASE EVENT DATE: 20200626
